FAERS Safety Report 9299258 (Version 1)
Quarter: 2013Q2

REPORT INFORMATION
  Report Type: Spontaneous
  Country: US (occurrence: US)
  Receive Date: 20130520
  Receipt Date: 20130520
  Transmission Date: 20140414
  Serious: No
  Sender: FDA-Public Use
  Company Number: US-009507513-1305USA010837

PATIENT
  Sex: Female

DRUGS (3)
  1. ZOCOR [Suspect]
     Dosage: 20 MG, QD
     Route: 048
  2. HORMONES (UNSPECIFIED) [Concomitant]
  3. THYROID [Concomitant]

REACTIONS (6)
  - Muscle spasms [Recovered/Resolved]
  - Joint injury [Recovered/Resolved]
  - Muscle spasms [Recovered/Resolved]
  - Muscle spasms [Recovered/Resolved]
  - Abasia [Recovered/Resolved]
  - Tendon injury [Recovered/Resolved]
